FAERS Safety Report 6683362-4 (Version None)
Quarter: 2010Q2

REPORT INFORMATION
  Report Type: 
  Country: None (occurrence: None)
  Receive Date: 20100415
  Receipt Date: 20100408
  Transmission Date: 20101027
  Serious: Yes (Death, Hospitalization)
  Sender: FDA-Public Use
  Company Number: US-AMGEN-QUU398992

PATIENT
  Sex: Male
  Weight: 89 kg

DRUGS (16)
  1. NPLATE [Suspect]
     Indication: IDIOPATHIC THROMBOCYTOPENIC PURPURA
     Route: 058
     Dates: start: 20080926, end: 20081107
  2. CORTICOSTEROIDS [Concomitant]
  3. DANAZOL [Concomitant]
  4. OMEPRAZOLE [Concomitant]
  5. GABAPENTIN [Concomitant]
  6. AMICAR [Concomitant]
  7. COMPAZINE [Concomitant]
  8. SEROQUEL [Concomitant]
  9. PREDNISONE [Concomitant]
  10. POTASSIUM CHLORIDE [Concomitant]
  11. SENNA [Concomitant]
  12. MS CONTIN [Concomitant]
  13. NYSTATIN [Concomitant]
  14. INSULIN [Concomitant]
  15. REGLAN [Concomitant]
  16. HALDOL [Concomitant]

REACTIONS (1)
  - HAEMORRHAGE INTRACRANIAL [None]
